FAERS Safety Report 6702939-0 (Version None)
Quarter: 2010Q2

REPORT INFORMATION
  Report Type: 
  Country: None (occurrence: None)
  Receive Date: 20100429
  Receipt Date: 20100422
  Transmission Date: 20101027
  Serious: Yes (Hospitalization)
  Sender: FDA-Public Use
  Company Number: FR-MERCK-1003FRA00082

PATIENT
  Age: 53 Year
  Sex: Male

DRUGS (6)
  1. ISENTRESS [Suspect]
     Indication: HIV INFECTION
     Route: 048
     Dates: start: 20100104, end: 20100120
  2. ISENTRESS [Suspect]
     Route: 048
     Dates: start: 20100211, end: 20100214
  3. INFLUENZA VIRUS A SAG VACCINE INACTIVATED (H1N1) [Suspect]
     Indication: PROPHYLAXIS
     Route: 058
     Dates: start: 20091205, end: 20091205
  4. ETRAVIRINE [Suspect]
     Indication: HIV INFECTION
     Route: 048
     Dates: start: 20100104, end: 20100120
  5. ETRAVIRINE [Suspect]
     Route: 048
     Dates: start: 20100211, end: 20100214
  6. PIPERACILLIN SODIUM AND TAZOBACTAM SODIUM [Concomitant]
     Route: 065
     Dates: start: 20100101, end: 20100120

REACTIONS (4)
  - MYELITIS [None]
  - NEUROPATHY PERIPHERAL [None]
  - PARAESTHESIA [None]
  - TREMOR [None]
